FAERS Safety Report 9918776 (Version 1)
Quarter: 2014Q1

REPORT INFORMATION
  Report Type: Spontaneous
  Country: US (occurrence: US)
  Receive Date: 20140224
  Receipt Date: 20140224
  Transmission Date: 20141002
  Serious: Yes (Other)
  Sender: FDA-Public Use
  Company Number: US-JNJCP-30000188597

PATIENT
  Age: 80 Year
  Sex: Female
  Weight: 70 kg

DRUGS (8)
  1. NEUTROGENA RAPID TONE REPAIR MOISTURIZER SPF30 [Suspect]
     Dosage: SMALL DAB, LESS THAN A PEA, EACH MORNING
     Route: 061
  2. DEPRESSION MEDICATION [Concomitant]
     Indication: DEPRESSION
     Dosage: DAILY, LESS THAN A YEAR
  3. NEUTROGENA RAPID WRINKLE REPAIR NIGHT MOISTURIZER [Suspect]
     Dosage: LITTLE DAB, LESS THAN A PEA, EACH NIGHT
     Route: 061
  4. MULTIVITAMIN ORAL TABLET [Concomitant]
     Indication: PRODUCT USED FOR UNKNOWN INDICATION
     Dosage: ONCE DAILY
     Route: 048
  5. GLUCASAMINE CAPSULES [Concomitant]
     Indication: PRODUCT USED FOR UNKNOWN INDICATION
  6. CALCIUM 500 MG ORAL TABLETS [Concomitant]
     Indication: PRODUCT USED FOR UNKNOWN INDICATION
     Dosage: 500 MG, TWICE DAILY
     Route: 048
  7. CITALOPRAM HYDROBROMIDE [Concomitant]
     Indication: PRODUCT USED FOR UNKNOWN INDICATION
     Dosage: 20 MG, ORAL TABLETS, 0.5 TABLET DAILY
     Route: 048
  8. NASONEX (MOMETASONE) 50 MCG OR ACT [Concomitant]
     Indication: PRODUCT USED FOR UNKNOWN INDICATION
     Dosage: NASAL SUSPENSION, TWO SPRAYS IN EACH NOSTRIL ONCE DAILY
     Route: 045

REACTIONS (6)
  - Application site pain [Recovered/Resolved]
  - Application site swelling [Recovered/Resolved]
  - Dermatitis contact [Recovered/Resolved]
  - Seborrhoeic keratosis [Recovered/Resolved]
  - Lentigo [Recovered/Resolved]
  - Sweat gland tumour [Recovered/Resolved]
